FAERS Safety Report 25944414 (Version 1)
Quarter: 2025Q4

REPORT INFORMATION
  Report Type: Spontaneous
  Country: EU (occurrence: EU)
  Receive Date: 20251021
  Receipt Date: 20251021
  Transmission Date: 20260117
  Serious: Yes (Hospitalization, Other)
  Sender: JOHNSON AND JOHNSON
  Company Number: EU-BAYER-2025A136677

PATIENT
  Age: 31 Year
  Sex: Male

DRUGS (3)
  1. RIVAROXABAN [Suspect]
     Active Substance: RIVAROXABAN
     Indication: Product used for unknown indication
     Route: 048
  2. CLOXACILLIN [Concomitant]
     Active Substance: CLOXACILLIN
     Indication: Product used for unknown indication
  3. AMOXICILLIN\CLAVULANIC ACID [Concomitant]
     Active Substance: AMOXICILLIN\CLAVULANIC ACID
     Indication: Product used for unknown indication

REACTIONS (7)
  - Pyrexia [Unknown]
  - Endocarditis [Unknown]
  - Prosthetic cardiac valve stenosis [Unknown]
  - Dyspnoea [Unknown]
  - Septic pulmonary embolism [Unknown]
  - Fatigue [Unknown]
  - Oedema peripheral [Unknown]
